FAERS Safety Report 9779607 (Version 1)
Quarter: 2013Q4

REPORT INFORMATION
  Report Type: Spontaneous
  Country: ES (occurrence: ES)
  Receive Date: 20131223
  Receipt Date: 20131223
  Transmission Date: 20140711
  Serious: Yes (Other)
  Sender: FDA-Public Use
  Company Number: ES-PFIZER INC-2013365260

PATIENT
  Age: 89 Year
  Sex: Female

DRUGS (1)
  1. PANTECTA [Suspect]
     Dosage: UNKNOWN DOSE (STRENGTH: 20MG TABLETS)
     Route: 065
     Dates: start: 2013, end: 20131113

REACTIONS (2)
  - Hypokalaemia [Unknown]
  - Hypomagnesaemia [Unknown]
